FAERS Safety Report 15418024 (Version 1)
Quarter: 2018Q3

REPORT INFORMATION
  Report Type: Spontaneous
  Country: US (occurrence: US)
  Receive Date: 20180918
  Receipt Date: 20180918
  Transmission Date: 20181010
  Serious: Yes (Death)
  Sender: FDA-Public Use
  Company Number: None

PATIENT
  Age: 57 Year
  Sex: Male

DRUGS (4)
  1. IDELVION [Suspect]
     Active Substance: COAGULATION FACTOR IX RECOMBINANT HUMAN
     Indication: FACTOR IX DEFICIENCY
     Route: 042
     Dates: start: 2016, end: 20180831
  2. ISENTRESS [Concomitant]
     Active Substance: RALTEGRAVIR POTASSIUM
  3. PROCRIT [Concomitant]
     Active Substance: ERYTHROPOIETIN
  4. TRUVADA [Concomitant]
     Active Substance: EMTRICITABINE\TENOFOVIR DISOPROXIL FUMARATE

REACTIONS (8)
  - Dialysis [None]
  - Central nervous system infection [None]
  - Liver transplant [None]
  - Seizure [None]
  - Infection [None]
  - Cardiac infection [None]
  - Renal failure [None]
  - Cardiac failure [None]

NARRATIVE: CASE EVENT DATE: 20180914
